FAERS Safety Report 12256936 (Version 1)
Quarter: 2016Q2

REPORT INFORMATION
  Report Type: Spontaneous
  Country: US (occurrence: None)
  Receive Date: 20160411
  Receipt Date: 20160411
  Transmission Date: 20160815
  Serious: No
  Sender: FDA-Public Use
  Company Number: None

PATIENT
  Age: 53 Year
  Sex: Male
  Weight: 88.3 kg

DRUGS (19)
  1. ADVAIR HFA [Concomitant]
     Active Substance: FLUTICASONE PROPIONATE\SALMETEROL XINAFOATE
  2. IPRATROPIUM [Concomitant]
     Active Substance: IPRATROPIUM
  3. POTASSIUM CHLORIDE. [Concomitant]
     Active Substance: POTASSIUM CHLORIDE
  4. ALBUTEROL HFA [Concomitant]
     Active Substance: ALBUTEROL SULFATE
  5. SPIRONOLACTONE. [Concomitant]
     Active Substance: SPIRONOLACTONE
  6. NEBULIZER SOLUTION (MEDICATION UNKNOWN) [Concomitant]
     Active Substance: UNSPECIFIED INGREDIENT
  7. LISINOPRIL, 40MG [Suspect]
     Active Substance: LISINOPRIL
     Indication: CARDIAC FAILURE CONGESTIVE
     Route: 048
     Dates: start: 20140716, end: 20160212
  8. ASPIRIN. [Concomitant]
     Active Substance: ASPIRIN
  9. CETIRIZINE [Concomitant]
     Active Substance: CETIRIZINE HYDROCHLORIDE
  10. FUROSEMIDE. [Concomitant]
     Active Substance: FUROSEMIDE
  11. SERTRALINE [Concomitant]
     Active Substance: SERTRALINE HYDROCHLORIDE
  12. CARVEDILOL. [Concomitant]
     Active Substance: CARVEDILOL
  13. ALPRAZOLAM. [Concomitant]
     Active Substance: ALPRAZOLAM
  14. OMEPRAZOLE. [Concomitant]
     Active Substance: OMEPRAZOLE
  15. PEG [Concomitant]
     Active Substance: POLYETHYLENE GLYCOLS
  16. LISINOPRIL, 40MG [Suspect]
     Active Substance: LISINOPRIL
     Indication: HYPERTENSION
     Route: 048
     Dates: start: 20140716, end: 20160212
  17. METFORMIN [Concomitant]
     Active Substance: METFORMIN HYDROCHLORIDE
  18. RANIDITINE [Concomitant]
  19. SIMVASTATIN. [Concomitant]
     Active Substance: SIMVASTATIN

REACTIONS (3)
  - Lip swelling [None]
  - Dyspnoea [None]
  - Swollen tongue [None]

NARRATIVE: CASE EVENT DATE: 20160212
